FAERS Safety Report 24687814 (Version 1)
Quarter: 2024Q4

REPORT INFORMATION
  Report Type: Spontaneous
  Country: US (occurrence: US)
  Receive Date: 20241202
  Receipt Date: 20241202
  Transmission Date: 20250115
  Serious: No
  Sender: SANOFI AVENTIS
  Company Number: US-SANOFI-02311995

PATIENT
  Sex: Male

DRUGS (1)
  1. ADMELOG [Suspect]
     Active Substance: INSULIN LISPRO
     Indication: Type 2 diabetes mellitus
     Dosage: 12 UNITS IN THE MORNING, 14 UNITS IN THE EVENING, AND 18 UNITS AT LUNCH

REACTIONS (2)
  - Fall [Unknown]
  - Fracture [Unknown]
